FAERS Safety Report 22109601 (Version 1)
Quarter: 2023Q1

REPORT INFORMATION
  Report Type: Spontaneous
  Country: US (occurrence: US)
  Receive Date: 20230317
  Receipt Date: 20230317
  Transmission Date: 20230417
  Serious: Yes (Hospitalization, Other)
  Sender: FDA-Public Use
  Company Number: US-INCYTE CORPORATION-2023IN002597

PATIENT

DRUGS (1)
  1. JAKAFI [Suspect]
     Active Substance: RUXOLITINIB
     Dosage: 5 MILLIGRAM, BID
     Route: 048
     Dates: start: 20220310

REACTIONS (5)
  - Atrial fibrillation [Unknown]
  - Cataract [Unknown]
  - Gastrooesophageal reflux disease [Unknown]
  - Depression [Unknown]
  - White blood cell count increased [Unknown]
